FAERS Safety Report 20496988 (Version 1)
Quarter: 2022Q1

REPORT INFORMATION
  Report Type: Spontaneous
  Country: SE (occurrence: SE)
  Receive Date: 20220221
  Receipt Date: 20220221
  Transmission Date: 20220424
  Serious: Yes (Other)
  Sender: FDA-Public Use
  Company Number: SE-ANIPHARMA-2022-SE-000004

PATIENT
  Age: 66 Year
  Sex: Female

DRUGS (2)
  1. ATACAND [Suspect]
     Active Substance: CANDESARTAN CILEXETIL
     Indication: Hypertension
     Dosage: 1 DF, DAILY
     Route: 048
     Dates: start: 1998
  2. LERCANIDIPINE [Concomitant]
     Active Substance: LERCANIDIPINE
     Dosage: ONCE DAILY IN THE MORNING
     Route: 065

REACTIONS (5)
  - Feeling abnormal [Unknown]
  - Hypotension [Unknown]
  - Tension [Unknown]
  - Head discomfort [Unknown]
  - Disturbance in attention [Unknown]
